FAERS Safety Report 17659973 (Version 2)
Quarter: 2020Q2

REPORT INFORMATION
  Report Type: Spontaneous
  Country: US (occurrence: US)
  Receive Date: 20200413
  Receipt Date: 20200514
  Transmission Date: 20200713
  Serious: Yes (Other)
  Sender: FDA-Public Use
  Company Number: US-DRREDDYS-USA/USA/20/0121936

PATIENT
  Age: 2 Decade
  Sex: Female

DRUGS (5)
  1. FOSPHENYTOIN SODIUM. [Suspect]
     Active Substance: FOSPHENYTOIN SODIUM
     Indication: STATUS EPILEPTICUS
     Route: 065
  2. LORAZEPAM INJECTION USP, 2 MG/ML AND 4 MG/ML [Suspect]
     Active Substance: LORAZEPAM
     Indication: STATUS EPILEPTICUS
     Route: 065
  3. LAMOTRIGINE TABLETS [Suspect]
     Active Substance: LAMOTRIGINE
     Indication: STATUS EPILEPTICUS
     Route: 065
  4. CLOBAZAM. [Suspect]
     Active Substance: CLOBAZAM
     Indication: STATUS EPILEPTICUS
     Route: 065
  5. LEVETIRACETAM. [Suspect]
     Active Substance: LEVETIRACETAM
     Indication: STATUS EPILEPTICUS
     Route: 065

REACTIONS (1)
  - Drug ineffective [Unknown]
